FAERS Safety Report 20920453 (Version 1)
Quarter: 2022Q2

REPORT INFORMATION
  Report Type: Spontaneous
  Country: US (occurrence: None)
  Receive Date: 20220606
  Receipt Date: 20220606
  Transmission Date: 20220721
  Serious: Yes (Life-Threatening, Hospitalization)
  Sender: FDA-Public Use
  Company Number: None

PATIENT
  Age: 82 Year
  Sex: Male

DRUGS (1)
  1. RIVAROXABAN [Suspect]
     Active Substance: RIVAROXABAN
     Indication: Atrial fibrillation
     Dosage: 1 TAB EVERY DAY PO
     Route: 048
     Dates: start: 20211028, end: 20220208

REACTIONS (3)
  - Pulmonary embolism [None]
  - Peripheral swelling [None]
  - Hypertension [None]

NARRATIVE: CASE EVENT DATE: 20220205
